FAERS Safety Report 11965599 (Version 1)
Quarter: 2016Q1

REPORT INFORMATION
  Report Type: Report from Study
  Country: PL (occurrence: PL)
  Receive Date: 20160127
  Receipt Date: 20160127
  Transmission Date: 20160526
  Serious: Yes (Life-Threatening)
  Sender: FDA-Public Use
  Company Number: PHHO2009PL019940

PATIENT
  Age: 83 Year
  Sex: Female
  Weight: 83.5 kg

DRUGS (8)
  1. ZANTAC [Concomitant]
     Active Substance: RANITIDINE HYDROCHLORIDE
     Indication: PREMEDICATION
     Dosage: 100 MG,
     Route: 042
     Dates: start: 20090902, end: 20090904
  2. ATOSSA//ONDANSETRON [Concomitant]
     Indication: PREMEDICATION
     Dosage: 8 MG,
     Route: 042
     Dates: start: 20090902, end: 20090904
  3. MILURIT [Concomitant]
     Active Substance: ALLOPURINOL
     Indication: PRODUCT USED FOR UNKNOWN INDICATION
     Dosage: 300 MG,
     Route: 048
     Dates: start: 20090902, end: 20090904
  4. OFATUMUMAB [Suspect]
     Active Substance: OFATUMUMAB
     Indication: CHRONIC LYMPHOCYTIC LEUKAEMIA
     Dosage: 300 MG (ALSO GIVEN AS 4,5-5),
     Route: 042
     Dates: start: 20090902, end: 20090902
  5. CYCLOPHOSPHAMIDE. [Suspect]
     Active Substance: CYCLOPHOSPHAMIDE
     Indication: CHRONIC LYMPHOCYTIC LEUKAEMIA
     Dosage: 250 MG/M2, UNK
     Route: 042
     Dates: start: 20090902
  6. PHENAZOLINUM [Concomitant]
     Indication: PREMEDICATION
     Dosage: 50 MG,
     Route: 042
     Dates: start: 20090902, end: 20090902
  7. FLUDARABINE PHOSPHATE. [Suspect]
     Active Substance: FLUDARABINE PHOSPHATE
     Indication: CHRONIC LYMPHOCYTIC LEUKAEMIA
     Dosage: 25 MG/M2, UNK
     Route: 042
     Dates: start: 20090902
  8. DIPHERGAN [Concomitant]
     Indication: PREMEDICATION
     Dosage: 50 MG,
     Route: 042
     Dates: start: 20090902, end: 20090902

REACTIONS (1)
  - Anaphylactic reaction [Recovered/Resolved]

NARRATIVE: CASE EVENT DATE: 20090902
